FAERS Safety Report 13022967 (Version 1)
Quarter: 2016Q4

REPORT INFORMATION
  Report Type: Spontaneous
  Country: JP (occurrence: JP)
  Receive Date: 20161213
  Receipt Date: 20161213
  Transmission Date: 20170207
  Serious: Yes (Hospitalization, Other)
  Sender: FDA-Public Use
  Company Number: JP-GLAXOSMITHKLINE-JP2016JPN181446

PATIENT
  Age: 26 Year
  Sex: Female

DRUGS (7)
  1. DEPAKENE [Concomitant]
     Active Substance: VALPROIC ACID
     Dosage: UNK
  2. ZYPREXA [Concomitant]
     Active Substance: OLANZAPINE
     Dosage: UNK
  3. BELSOMRA [Concomitant]
     Active Substance: SUVOREXANT
     Dosage: UNK
  4. LAMICTAL [Suspect]
     Active Substance: LAMOTRIGINE
     Indication: BIPOLAR DISORDER
     Dosage: 1750 MG, SINGLE
     Route: 048
     Dates: start: 20161206
  5. DIAZEPAM. [Concomitant]
     Active Substance: DIAZEPAM
     Dosage: UNK
  6. FLUNITRAZEPAM [Concomitant]
     Active Substance: FLUNITRAZEPAM
     Dosage: UNK
  7. LEVOMEPROMAZINE [Concomitant]
     Active Substance: LEVOMEPROMAZINE
     Dosage: UNK

REACTIONS (6)
  - Loss of consciousness [Recovered/Resolved]
  - Pain [Unknown]
  - Overdose [Unknown]
  - Altered state of consciousness [Recovered/Resolved]
  - Insomnia [Unknown]
  - Moaning [Unknown]

NARRATIVE: CASE EVENT DATE: 201612
